FAERS Safety Report 5519272-5 (Version None)
Quarter: 2007Q4

REPORT INFORMATION
  Report Type: 
  Country: None (occurrence: None)
  Receive Date: 20071116
  Receipt Date: 20071112
  Transmission Date: 20080405
  Serious: Yes (Death, Hospitalization, Other)
  Sender: FDA-Public Use
  Company Number: MY-AVENTIS-200720198GDDC

PATIENT
  Age: 31 Year
  Sex: Female

DRUGS (3)
  1. ARAVA [Suspect]
     Indication: RHEUMATOID ARTHRITIS
     Route: 048
     Dates: start: 20070901, end: 20071029
  2. PREDNISOLONE [Concomitant]
  3. ARCOXIA [Concomitant]

REACTIONS (10)
  - ABDOMINAL PAIN [None]
  - ALOPECIA [None]
  - DYSPNOEA [None]
  - EXCORIATION [None]
  - GRAND MAL CONVULSION [None]
  - HEPATIC STEATOSIS [None]
  - LEUKOPENIA [None]
  - PNEUMONITIS [None]
  - PRURITUS [None]
  - SEPSIS [None]
